FAERS Safety Report 14469062 (Version 2)
Quarter: 2018Q1

REPORT INFORMATION
  Report Type: Spontaneous
  Country: FR (occurrence: FR)
  Receive Date: 20180131
  Receipt Date: 20180206
  Transmission Date: 20180509
  Serious: Yes (Death, Other)
  Sender: FDA-Public Use
  Company Number: FR-PFIZER INC-2018040366

PATIENT
  Age: 43 Year
  Sex: Female

DRUGS (1)
  1. KETAMINE HCL [Suspect]
     Active Substance: KETAMINE HYDROCHLORIDE
     Indication: GENERAL ANAESTHESIA
     Dosage: 25 MG, UNK

REACTIONS (4)
  - Condition aggravated [Unknown]
  - Loss of consciousness [Unknown]
  - Brain hypoxia [Fatal]
  - Hypoxia [Fatal]
